FAERS Safety Report 7478715-0 (Version None)
Quarter: 2011Q2

REPORT INFORMATION
  Report Type: 
  Country: None (occurrence: None)
  Receive Date: 20110513
  Receipt Date: 20110509
  Transmission Date: 20111010
  Serious: Yes (Hospitalization)
  Sender: FDA-Public Use
  Company Number: US-AMGEN-USASP2011016607

PATIENT
  Age: 59 Year
  Sex: Male

DRUGS (1)
  1. ENBREL [Suspect]
     Indication: RHEUMATOID ARTHRITIS
     Dosage: 25 MG, QWK
     Dates: start: 20070130

REACTIONS (5)
  - NASOPHARYNGITIS [None]
  - FINGER DEFORMITY [None]
  - OSTEOARTHRITIS [None]
  - COUGH [None]
  - HAND DEFORMITY [None]
